FAERS Safety Report 9251683 (Version 1)
Quarter: 2013Q2

REPORT INFORMATION
  Report Type: Report from Study
  Country: BE (occurrence: BE)
  Receive Date: 20130424
  Receipt Date: 20130424
  Transmission Date: 20140414
  Serious: Yes (Hospitalization)
  Sender: FDA-Public Use
  Company Number: BE-JNJFOC-20130408732

PATIENT
  Sex: Female
  Weight: 50 kg

DRUGS (7)
  1. REMICADE [Suspect]
     Indication: COLITIS ULCERATIVE
     Route: 042
     Dates: end: 20120709
  2. IMURAN [Suspect]
     Indication: COLITIS ULCERATIVE
     Route: 048
     Dates: start: 20100212
  3. MEDROL [Concomitant]
     Indication: COLITIS ULCERATIVE
     Route: 048
     Dates: start: 201207
  4. OMEPRAZOLE [Concomitant]
     Route: 048
  5. STEOVIT D3 [Concomitant]
     Indication: PROPHYLAXIS
     Route: 065
  6. MOBIC [Concomitant]
     Route: 048
  7. FERROGRADUMET [Concomitant]
     Dosage: 525 (UNITS UNSPECIFIED)
     Route: 065

REACTIONS (1)
  - Herpes zoster [Recovered/Resolved]
